FAERS Safety Report 18252876 (Version 1)
Quarter: 2020Q3

REPORT INFORMATION
  Report Type: Spontaneous
  Country: AU (occurrence: AU)
  Receive Date: 20200910
  Receipt Date: 20200910
  Transmission Date: 20201103
  Serious: Yes (Other)
  Sender: FDA-Public Use
  Company Number: AU-ASTRAZENECA-2020SF13709

PATIENT

DRUGS (2)
  1. SGLT2 INHIBITOR [DAPAGLIFLOZIN] [Suspect]
     Active Substance: DAPAGLIFLOZIN
     Indication: TYPE 2 DIABETES MELLITUS
     Route: 048
  2. INSULIN [Suspect]
     Active Substance: INSULIN NOS
     Route: 065

REACTIONS (1)
  - Diabetic ketoacidosis [Unknown]
